FAERS Safety Report 5189231-3 (Version None)
Quarter: 2006Q4

REPORT INFORMATION
  Report Type: 
  Country: None (occurrence: None)
  Receive Date: 20061218
  Receipt Date: 20061207
  Transmission Date: 20070319
  Serious: Yes (Death)
  Sender: FDA-Public Use
  Company Number: 2006-319

PATIENT
  Sex: Female
  Weight: 86.1834 kg

DRUGS (10)
  1. TRAZODONE HCL [Suspect]
     Dosage: 2 TABLETS AT BEDTIME
     Dates: start: 20060413, end: 20060503
  2. SEROQUEL [Suspect]
  3. IMIPRAMINE [Suspect]
  4. DIAZEPAM [Concomitant]
  5. AVELOX [Concomitant]
  6. ZYRTEC [Concomitant]
  7. METFORMIN HCL [Concomitant]
  8. GABAPENTIN [Concomitant]
  9. LEVOXYL [Concomitant]
  10. METHADONE HCL [Concomitant]

REACTIONS (2)
  - DRUG TOXICITY [None]
  - HEPATIC FAILURE [None]
